FAERS Safety Report 4541390-9 (Version None)
Quarter: 2004Q4

REPORT INFORMATION
  Report Type: 
  Country: None (occurrence: None)
  Receive Date: 20041229
  Receipt Date: 20041220
  Transmission Date: 20050328
  Serious: Yes (Life-Threatening, Hospitalization, Disabling)
  Sender: FDA-Public Use
  Company Number: US-MERCK-0412USA02394

PATIENT
  Age: 69 Year
  Sex: Female

DRUGS (8)
  1. VIOXX [Suspect]
     Indication: SYSTEMIC LUPUS ERYTHEMATOSUS
     Route: 048
     Dates: end: 20040930
  2. VIOXX [Suspect]
     Indication: FIBROMYALGIA
     Route: 048
     Dates: end: 20040930
  3. FUROSEMIDE [Concomitant]
     Route: 065
  4. PREVACID [Concomitant]
     Route: 065
  5. DIOVAN [Concomitant]
     Route: 065
  6. VERAPAMIL [Concomitant]
     Route: 065
  7. POTASSIUM (UNSPECIFIED) [Concomitant]
     Route: 065
  8. ALPRAZOLAM [Concomitant]
     Route: 065

REACTIONS (4)
  - CARDIAC VALVE DISEASE [None]
  - CORONARY ARTERY OCCLUSION [None]
  - GASTRIC ULCER [None]
  - PRESCRIBED OVERDOSE [None]
